FAERS Safety Report 8565399-3 (Version None)
Quarter: 2012Q3

REPORT INFORMATION
  Report Type: 
  Country: None (occurrence: None)
  Receive Date: 20120803
  Receipt Date: 20120727
  Transmission Date: 20120928
  Serious: Yes (Hospitalization)
  Sender: FDA-Public Use
  Company Number: US-TEVA-351368USA

PATIENT
  Sex: Female

DRUGS (4)
  1. ENABLEX [Concomitant]
     Indication: BLADDER DISORDER
     Dosage: 7.5 MILLIGRAM;
     Route: 048
  2. PROVIGIL [Suspect]
     Indication: NARCOLEPSY
     Dosage: 800 MILLIGRAM;
     Route: 048
     Dates: start: 20080101
  3. METOPROLOL TARTRATE [Concomitant]
     Indication: HYPERTENSION
     Dosage: 50 MILLIGRAM;
     Route: 048
  4. SYMBICORT [Concomitant]
     Indication: CHRONIC OBSTRUCTIVE PULMONARY DISEASE

REACTIONS (3)
  - PANCREATITIS [None]
  - METABOLIC ACIDOSIS [None]
  - OVERDOSE [None]
